FAERS Safety Report 9135087 (Version 1)
Quarter: 2013Q1

REPORT INFORMATION
  Report Type: Report from Study
  Country: US (occurrence: US)
  Receive Date: 20130304
  Receipt Date: 20130304
  Transmission Date: 20140127
  Serious: Yes (Death, Hospitalization, Other)
  Sender: FDA-Public Use
  Company Number: US-GENZYME-CLOF-1002527

PATIENT
  Age: 63 Year
  Sex: Female
  Weight: 78 kg

DRUGS (3)
  1. CLOLAR [Suspect]
     Indication: ACUTE MYELOID LEUKAEMIA
     Dosage: 30 MG/M2 OVER 1 HR FOR 5 DAYS
     Route: 042
     Dates: start: 20130212, end: 20130216
  2. DEXAMETHASONE [Concomitant]
     Indication: PRODUCT USED FOR UNKNOWN INDICATION
     Dosage: UNK
     Route: 065
  3. ZOFRAN [Concomitant]
     Indication: PRODUCT USED FOR UNKNOWN INDICATION
     Dosage: UNK
     Route: 065

REACTIONS (8)
  - Blood creatine phosphokinase increased [Unknown]
  - Caecitis [Fatal]
  - Bacterial infection [Fatal]
  - Neutropenia [Fatal]
  - Liver function test abnormal [Unknown]
  - Blood creatinine increased [Unknown]
  - Dyspnoea [Unknown]
  - Hypotension [Unknown]
